FAERS Safety Report 13958401 (Version 1)
Quarter: 2017Q3

REPORT INFORMATION
  Report Type: Spontaneous
  Country: US (occurrence: US)
  Receive Date: 20170911
  Receipt Date: 20170911
  Transmission Date: 20171128
  Serious: Yes (Other)
  Sender: FDA-Public Use
  Company Number: US-ROCHE-1130673

PATIENT
  Sex: Male
  Weight: 91.71 kg

DRUGS (14)
  1. VINCRISTIN [Concomitant]
     Active Substance: VINCRISTINE
  2. COUMADIN [Concomitant]
     Active Substance: WARFARIN SODIUM
     Route: 065
  3. METHYLPREDNISOLON [Concomitant]
     Active Substance: METHYLPREDNISOLONE
  4. PREDNISONE. [Concomitant]
     Active Substance: PREDNISONE
  5. CYTARABINE. [Concomitant]
     Active Substance: CYTARABINE
  6. CISPLATIN. [Concomitant]
     Active Substance: CISPLATIN
  7. PRINIVIL [Concomitant]
     Active Substance: LISINOPRIL
  8. LANOXIN [Concomitant]
     Active Substance: DIGOXIN
  9. LASIX [Concomitant]
     Active Substance: FUROSEMIDE
  10. RITUXAN [Suspect]
     Active Substance: RITUXIMAB
     Indication: DIFFUSE LARGE B-CELL LYMPHOMA
     Route: 065
     Dates: start: 20000908
  11. KCL [Concomitant]
     Active Substance: POTASSIUM CHLORIDE
  12. CYCLOPHOSPHAMIDE. [Concomitant]
     Active Substance: CYCLOPHOSPHAMIDE
  13. DOXORUBICIN [Concomitant]
     Active Substance: DOXORUBICIN
  14. ETOPOSIDE. [Concomitant]
     Active Substance: ETOPOSIDE

REACTIONS (4)
  - Productive cough [Unknown]
  - Dyspnoea [Unknown]
  - Flank pain [Unknown]
  - Upper respiratory tract infection [Unknown]
